FAERS Safety Report 25632169 (Version 2)
Quarter: 2025Q3

REPORT INFORMATION
  Report Type: Spontaneous
  Country: EU (occurrence: EU)
  Receive Date: 20250801
  Receipt Date: 20250812
  Transmission Date: 20251020
  Serious: Yes (Other)
  Sender: AVERITAS
  Company Number: EU-GRUNENTHAL-2025-111713

PATIENT
  Age: 29 Year
  Sex: Female

DRUGS (6)
  1. QUTENZA [Suspect]
     Active Substance: CAPSAICIN
     Indication: Neuralgia
     Route: 003
     Dates: start: 20250708, end: 20250708
  2. QUTENZA [Suspect]
     Active Substance: CAPSAICIN
     Route: 003
     Dates: start: 20241021, end: 20241021
  3. QUTENZA [Suspect]
     Active Substance: CAPSAICIN
     Route: 003
  4. QUTENZA [Suspect]
     Active Substance: CAPSAICIN
     Route: 003
  5. QUTENZA [Suspect]
     Active Substance: CAPSAICIN
     Route: 003
  6. NEFOPAM [Concomitant]
     Active Substance: NEFOPAM
     Route: 065

REACTIONS (3)
  - Application site burn [Recovering/Resolving]
  - Impaired work ability [Not Recovered/Not Resolved]
  - Application site pain [Recovering/Resolving]

NARRATIVE: CASE EVENT DATE: 20250709
